FAERS Safety Report 6530288-2 (Version None)
Quarter: 2009Q4

REPORT INFORMATION
  Report Type: 
  Country: None (occurrence: None)
  Receive Date: 20091231
  Receipt Date: 20091218
  Transmission Date: 20100525
  Serious: Yes (Other)
  Sender: FDA-Public Use
  Company Number: LIP09019

PATIENT
  Sex: Male
  Weight: 104.3273 kg

DRUGS (6)
  1. LIPOFEN [Suspect]
     Indication: HYPERLIPIDAEMIA
     Dosage: 150 MG ORAL
     Route: 048
     Dates: start: 20090627, end: 20091103
  2. SIMVASTATIN [Suspect]
     Indication: HYPERLIPIDAEMIA
     Dosage: 20 MG NIGHTLY ORAL
     Route: 048
     Dates: start: 20070101, end: 20091103
  3. FLECAINIDE ACETATE [Concomitant]
  4. DYAZIDE [Concomitant]
  5. POTASSIUM CHLORIDE [Concomitant]
  6. METOPROLOL TART [Concomitant]

REACTIONS (1)
  - HEPATITIS [None]
